FAERS Safety Report 4510303-8 (Version None)
Quarter: 2004Q4

REPORT INFORMATION
  Report Type: 
  Country: None (occurrence: None)
  Receive Date: 20041122
  Receipt Date: 20041108
  Transmission Date: 20050328
  Serious: Yes (Hospitalization, Other)
  Sender: FDA-Public Use
  Company Number: 2004090355

PATIENT
  Age: 30 Year
  Sex: Female
  Weight: 61.2356 kg

DRUGS (6)
  1. BENADRYL [Suspect]
     Indication: HYPERSENSITIVITY
     Dates: start: 20041031, end: 20041101
  2. BENADRYL [Suspect]
     Indication: HYPERSENSITIVITY
     Dates: start: 20041029, end: 20041101
  3. BENADRYL ALLERGY/SINUS (DIPHENHYDRAMINE, PSEUDOEPHEDRINE) [Suspect]
     Indication: HYPERSENSITIVITY
     Dates: start: 20041028, end: 20041101
  4. ALL OTHER THERAPEUTIC PRODUCTS (ALL OTHER THERAPEUTIC PRODUCTS) [Suspect]
     Indication: HYPERSENSITIVITY
     Dates: start: 20041030, end: 20041031
  5. ESCITALOPRAM (ESCITALOPRAM) [Concomitant]
  6. TRAZODONE HCL [Concomitant]

REACTIONS (8)
  - ANAPHYLACTIC SHOCK [None]
  - ASTHMA [None]
  - CONDITION AGGRAVATED [None]
  - DYSPNOEA [None]
  - EYE SWELLING [None]
  - HAEMATEMESIS [None]
  - STOMACH DISCOMFORT [None]
  - URTICARIA [None]
